FAERS Safety Report 5032345-9 (Version None)
Quarter: 2006Q2

REPORT INFORMATION
  Report Type: 
  Country: None (occurrence: None)
  Receive Date: 20060621
  Receipt Date: 20060621
  Transmission Date: 20061013
  Serious: Yes (Hospitalization, Disabling)
  Sender: FDA-Public Use
  Company Number: None

PATIENT
  Age: 78 Year
  Sex: Female
  Weight: 100.7 kg

DRUGS (8)
  1. FOSAMAX [Suspect]
     Indication: OSTEOARTHRITIS
     Dosage: 70 MG EVERY WEEK PO
     Route: 048
     Dates: start: 20060101, end: 20060612
  2. PROVERA [Concomitant]
  3. PREDNISONE [Concomitant]
  4. METHOTREXATE [Concomitant]
  5. CELEBREX [Concomitant]
  6. LOPRESSOR [Concomitant]
  7. PLAVIX [Concomitant]
  8. FOSAMAX [Concomitant]

REACTIONS (11)
  - ABSCESS JAW [None]
  - BONE SWELLING [None]
  - ERYTHEMA [None]
  - ESCHAR [None]
  - HAEMORRHAGE [None]
  - INDURATION [None]
  - JAW DISORDER [None]
  - OSTEOMYELITIS [None]
  - OSTEONECROSIS [None]
  - PAIN IN JAW [None]
  - TENDERNESS [None]
